FAERS Safety Report 10136279 (Version 2)
Quarter: 2014Q2

REPORT INFORMATION
  Report Type: Other
  Country: GB (occurrence: GB)
  Receive Date: 20140429
  Receipt Date: 20140515
  Transmission Date: 20141212
  Serious: Yes (Hospitalization, Other)
  Sender: FDA-Public Use
  Company Number: GB-PERRIGO-14GB004176

PATIENT
  Age: 79 Year
  Sex: Male

DRUGS (2)
  1. LORATADINE 16028/0080 10 MG [Suspect]
     Indication: HYPERSENSITIVITY
     Dosage: 10 MG, SINGLE
     Route: 048
     Dates: start: 20140316, end: 20140316
  2. FLECAINIDE [Concomitant]
     Indication: CARDIAC DISORDER
     Dosage: UNK
     Route: 065

REACTIONS (7)
  - Blood pressure decreased [Recovered/Resolved]
  - Syncope [Recovered/Resolved]
  - Heart rate increased [Recovered/Resolved]
  - Nausea [Recovered/Resolved]
  - Malaise [Recovered/Resolved]
  - Tunnel vision [Recovered/Resolved]
  - Palpitations [Recovered/Resolved]
